FAERS Safety Report 10077926 (Version 1)
Quarter: 2014Q2

REPORT INFORMATION
  Report Type: Spontaneous
  Country: US (occurrence: US)
  Receive Date: 20140415
  Receipt Date: 20140415
  Transmission Date: 20141212
  Serious: Yes (Other)
  Sender: FDA-Public Use
  Company Number: US-AMGEN-USASP2014025311

PATIENT
  Age: 20 Month
  Sex: Male

DRUGS (3)
  1. NEUPOGEN [Suspect]
     Indication: INFANTILE GENETIC AGRANULOCYTOSIS
     Dosage: UNK
     Route: 058
  2. NEUPOGEN [Suspect]
     Indication: LYMPHOPENIA
  3. NEUPOGEN [Suspect]
     Indication: HYPOGAMMAGLOBULINAEMIA

REACTIONS (2)
  - Lymphopenia [Not Recovered/Not Resolved]
  - Acute febrile neutrophilic dermatosis [Unknown]
